FAERS Safety Report 9304555 (Version 1)
Quarter: 2013Q2

REPORT INFORMATION
  Report Type: Spontaneous
  Country: US (occurrence: US)
  Receive Date: 20130523
  Receipt Date: 20130523
  Transmission Date: 20140414
  Serious: No
  Sender: FDA-Public Use
  Company Number: US-B.I. PHARMACEUTICALS,INC./RIDGEFIELD-2013-BI-14144BP

PATIENT
  Age: 86 Year
  Sex: Female
  Weight: 56 kg

DRUGS (3)
  1. COMBIVENT [Suspect]
     Indication: CHRONIC OBSTRUCTIVE PULMONARY DISEASE
     Dosage: STRENGTH: 18 MCG / 103 MCG; DAILY DOSE: 144MCG/824MCG
     Route: 055
     Dates: start: 2011, end: 20130504
  2. COMBIVENT [Suspect]
     Dosage: STRENGTH: 18 MCG / 103 MCG; DAILY DOSE: 72MCG/432MCG
     Route: 055
     Dates: start: 20130505
  3. COMBIVENT [Suspect]
     Indication: CHRONIC OBSTRUCTIVE PULMONARY DISEASE
     Dosage: STRENGTH: 20 MCG / 100 MCG; DAILY DOSE: 40MCG/200MCG
     Route: 055
     Dates: start: 20130505

REACTIONS (1)
  - Drug ineffective [Not Recovered/Not Resolved]
